FAERS Safety Report 6580301-1 (Version None)
Quarter: 2010Q1

REPORT INFORMATION
  Report Type: 
  Country: None (occurrence: None)
  Receive Date: 20100212
  Receipt Date: 20091117
  Transmission Date: 20100710
  Serious: No
  Sender: FDA-Public Use
  Company Number: US-ALLERGAN-0915898US

PATIENT
  Age: 85 Year
  Sex: Female

DRUGS (4)
  1. COMBIGAN [Suspect]
     Indication: GLAUCOMA
     Dosage: 1 GTT, BID
     Route: 047
     Dates: start: 20091001, end: 20091117
  2. COMBIGAN [Suspect]
     Dosage: 1 GTT, SINGLE
     Route: 047
  3. NORVASC [Concomitant]
  4. XANAX [Concomitant]

REACTIONS (3)
  - BLOOD PRESSURE INCREASED [None]
  - DYSPNOEA [None]
  - INSTILLATION SITE PAIN [None]
